FAERS Safety Report 9387749 (Version 1)
Quarter: 2013Q3

REPORT INFORMATION
  Report Type: Spontaneous
  Country: FR (occurrence: None)
  Receive Date: 20130703
  Receipt Date: 20130703
  Transmission Date: 20140515
  Serious: Yes (Other)
  Sender: FDA-Public Use
  Company Number: 1730713

PATIENT
  Age: 57 Year
  Sex: Female
  Weight: 57 kg

DRUGS (5)
  1. OXALIPLATIN [Suspect]
     Indication: HEPATIC CANCER METASTATIC
     Dosage: (NOT OTHERWISE SPECIFIED)
     Route: 042
  2. FOLIC ACID [Concomitant]
  3. 5-FU /00098802/ [Concomitant]
  4. TOLEXIINE /00055701/ [Concomitant]
  5. VECTIBIX [Concomitant]

REACTIONS (6)
  - Hypersensitivity [None]
  - Malaise [None]
  - Erythema [None]
  - Paraesthesia [None]
  - Oedema [None]
  - Presyncope [None]
